FAERS Safety Report 21017034 (Version 1)
Quarter: 2022Q2

REPORT INFORMATION
  Report Type: Other
  Country: US (occurrence: None)
  Receive Date: 20220628
  Receipt Date: 20220628
  Transmission Date: 20220721
  Serious: Yes (Other)
  Sender: FDA-Public Use
  Company Number: US-ROCHE-3126003

PATIENT
  Age: 36 Year
  Sex: Female

DRUGS (2)
  1. BEVACIZUMAB [Suspect]
     Active Substance: BEVACIZUMAB
     Indication: Astroblastoma
     Dosage: AT 15-MONTH FOLLOW-UP, SHE HAD COMPLETED FOUR CYCLES OF BEVACIZUMAB
     Route: 065
  2. LOMUSTINE [Suspect]
     Active Substance: LOMUSTINE
     Indication: Astroblastoma
     Dosage: AT 15-MONTH FOLLOW-UP, SHE HAD COMPLETED FOUR CYCLES OF LOMUSTINE
     Route: 065

REACTIONS (1)
  - Disease progression [Unknown]
